FAERS Safety Report 8835253 (Version 2)
Quarter: 2012Q4

REPORT INFORMATION
  Report Type: 
  Country: GB (occurrence: GB)
  Receive Date: 20121011
  Receipt Date: 20121120
  Transmission Date: 20130627
  Serious: Yes (Life-Threatening, Hospitalization)
  Sender: FDA-Public Use
  Company Number: GB-PFIZER INC-2012248480

PATIENT
  Age: 72 Year
  Sex: Female
  Weight: 74.3 kg

DRUGS (9)
  1. SUTENT [Suspect]
     Indication: RENAL CELL CANCER
     Dosage: 25 mg, 1x/day
     Route: 048
     Dates: start: 20120913, end: 20121005
  2. RAMIPRIL [Concomitant]
     Dosage: 2.5 mg, 1x/day
     Dates: end: 20121005
  3. NIFEDIPINE [Concomitant]
     Indication: HYPERTENSION
     Dosage: 5 mg, 1x/day
     Route: 048
     Dates: end: 20121005
  4. ALENDRONIC ACID [Concomitant]
     Indication: OSTEOPOROSIS
     Dosage: 70 mg, weekly
     Dates: end: 20121005
  5. ACETYLSALICYLIC ACID [Concomitant]
     Indication: PREVENTION
     Dosage: 75 mg, UNK
     Dates: end: 20121005
  6. CO-CODAMOL [Concomitant]
     Indication: ARTHRITIC PAINS
     Dosage: 30/500  2 DF, 4x/day
     Route: 048
  7. GABAPENTIN [Concomitant]
     Indication: ARTHRITIC PAINS
     Dosage: 300 mg, 2x/day
     Route: 048
  8. FUROSEMIDE [Concomitant]
     Dosage: 40 mg, 1x/day
     Route: 048
  9. LACTULOSE [Concomitant]
     Dosage: 15 ml, 2x/day

REACTIONS (4)
  - Anaphylactic reaction [Recovered/Resolved]
  - Swollen tongue [Recovered/Resolved]
  - Aphasia [Recovered/Resolved]
  - Respiratory arrest [Recovered/Resolved]
